FAERS Safety Report 8016459-7 (Version None)
Quarter: 2011Q4

REPORT INFORMATION
  Report Type: 
  Country: None (occurrence: None)
  Receive Date: 20111230
  Receipt Date: 20111221
  Transmission Date: 20120403
  Serious: Yes (Hospitalization)
  Sender: FDA-Public Use
  Company Number: ZA-ABBOTT-11P-143-0885934-00

PATIENT
  Sex: Female

DRUGS (3)
  1. HUMIRA [Suspect]
     Route: 058
  2. HUMIRA [Suspect]
     Indication: CROHN'S DISEASE
     Dosage: LOADING DOSE
     Route: 058
     Dates: start: 20111101
  3. HUMIRA [Suspect]
     Dosage: WEEK 2
     Route: 058

REACTIONS (2)
  - STRESS [None]
  - CROHN'S DISEASE [None]
